FAERS Safety Report 5294757-8 (Version None)
Quarter: 2007Q2

REPORT INFORMATION
  Report Type: 
  Country: None (occurrence: None)
  Receive Date: 20070409
  Receipt Date: 20070409
  Transmission Date: 20071010
  Serious: No
  Sender: FDA-Public Use
  Company Number: None

PATIENT
  Age: 46 Year
  Sex: Male
  Weight: 99.7913 kg

DRUGS (2)
  1. LEVAQUIN [Suspect]
     Indication: SINUSITIS
     Dosage: 500MG  1 TAB/DAY   PO
     Route: 048
     Dates: start: 20060116, end: 20060126
  2. LEVAQUIN [Suspect]
     Indication: SINUSITIS
     Dosage: 500MG  1 TAB/DAY   PO
     Route: 048
     Dates: start: 20060620, end: 20060630

REACTIONS (7)
  - ARTHRALGIA [None]
  - DECREASED ACTIVITY [None]
  - DEPRESSION [None]
  - FATIGUE [None]
  - JOB DISSATISFACTION [None]
  - MYALGIA [None]
  - TENDONITIS [None]
